FAERS Safety Report 4793477-3 (Version None)
Quarter: 2005Q4

REPORT INFORMATION
  Report Type: 
  Country: None (occurrence: None)
  Receive Date: 20051011
  Receipt Date: 20050701
  Transmission Date: 20060501
  Serious: No
  Sender: FDA-Public Use
  Company Number: US-BRISTOL-MYERS SQUIBB COMPANY-13023114

PATIENT
  Age: 75 Year
  Sex: Female
  Weight: 61 kg

DRUGS (11)
  1. GLUCOPHAGE XR [Suspect]
     Indication: DIABETES MELLITUS
     Dates: start: 20050501, end: 20050101
  2. LIPITOR [Concomitant]
  3. OXAZEPAM [Concomitant]
  4. SINEQUAN [Concomitant]
  5. NORVASC [Concomitant]
  6. SYNTHROID [Concomitant]
  7. INDERAL [Concomitant]
  8. ZESTORETIC [Concomitant]
  9. PREVACID [Concomitant]
  10. PLAVIX [Concomitant]
  11. FIORINAL [Concomitant]

REACTIONS (1)
  - RASH [None]
